FAERS Safety Report 8243525-3 (Version None)
Quarter: 2012Q1

REPORT INFORMATION
  Report Type: 
  Country: None (occurrence: None)
  Receive Date: 20120329
  Receipt Date: 20120321
  Transmission Date: 20120608
  Serious: Yes (Other)
  Sender: FDA-Public Use
  Company Number: PHHY2012CA007233

PATIENT
  Sex: Female

DRUGS (1)
  1. GILENYA [Suspect]
     Indication: RELAPSING-REMITTING MULTIPLE SCLEROSIS
     Dosage: 0.5 MG, DAILY
     Route: 048
     Dates: start: 20120123

REACTIONS (19)
  - TRIGEMINAL NEURALGIA [None]
  - OEDEMA PERIPHERAL [None]
  - HEART RATE DECREASED [None]
  - DYSPNOEA [None]
  - PALPITATIONS [None]
  - CONFUSIONAL STATE [None]
  - EYELID OEDEMA [None]
  - DIZZINESS [None]
  - BODY TEMPERATURE DECREASED [None]
  - DIPLOPIA [None]
  - LOCAL SWELLING [None]
  - MULTIPLE SCLEROSIS RELAPSE [None]
  - FATIGUE [None]
  - HEADACHE [None]
  - ALOPECIA [None]
  - PAIN IN JAW [None]
  - SWELLING FACE [None]
  - DRY EYE [None]
  - BACK PAIN [None]
